FAERS Safety Report 15434939 (Version 1)
Quarter: 2018Q3

REPORT INFORMATION
  Report Type: Spontaneous
  Country: US (occurrence: US)
  Receive Date: 20180927
  Receipt Date: 20180927
  Transmission Date: 20181010
  Serious: No
  Sender: FDA-Public Use
  Company Number: US-BAYER-2018-176922

PATIENT
  Age: 76 Year
  Sex: Male
  Weight: 83 kg

DRUGS (4)
  1. FLONASE [Concomitant]
     Active Substance: FLUTICASONE PROPIONATE
  2. CLARITIN [Suspect]
     Active Substance: LORATADINE
  3. CORICIDIN HBP COUGH AND COLD [Suspect]
     Active Substance: CHLORPHENIRAMINE MALEATE\DEXTROMETHORPHAN HYDROBROMIDE
     Indication: ALLERGIC RESPIRATORY SYMPTOM
     Dosage: 1 TABLET EVERY 6 HOURS
     Route: 048
     Dates: start: 20180915, end: 20180918
  4. CORICIDIN HBP COUGH AND COLD [Suspect]
     Active Substance: CHLORPHENIRAMINE MALEATE\DEXTROMETHORPHAN HYDROBROMIDE
     Indication: NASOPHARYNGITIS

REACTIONS (1)
  - Heart rate increased [Unknown]
